FAERS Safety Report 14881028 (Version 1)
Quarter: 2018Q2

REPORT INFORMATION
  Report Type: Spontaneous
  Country: US (occurrence: US)
  Receive Date: 20180511
  Receipt Date: 20180511
  Transmission Date: 20180711
  Serious: Yes (Hospitalization, Other)
  Sender: FDA-Public Use
  Company Number: US-ASTRAZENECA-2018SE59882

PATIENT
  Age: 90 Year
  Sex: Female
  Weight: 49.4 kg

DRUGS (4)
  1. PREDNISONE. [Concomitant]
     Active Substance: PREDNISONE
     Dosage: UNKNOWN
     Route: 065
  2. BRILINTA [Suspect]
     Active Substance: TICAGRELOR
     Indication: STENT PLACEMENT
     Route: 048
     Dates: start: 2015, end: 201804
  3. ASPIRIN. [Concomitant]
     Active Substance: ASPIRIN
     Indication: CARDIAC DISORDER
     Route: 048
  4. COUMADIN [Concomitant]
     Active Substance: WARFARIN SODIUM
     Dosage: UNKNOWN
     Route: 065

REACTIONS (15)
  - Wheezing [Unknown]
  - Lung disorder [Unknown]
  - Malaise [Unknown]
  - Bone disorder [Unknown]
  - Hypokinesia [Unknown]
  - Fall [Unknown]
  - Memory impairment [Unknown]
  - Speech disorder [Unknown]
  - Fatigue [Unknown]
  - General physical health deterioration [Unknown]
  - Adrenal disorder [Unknown]
  - Pulmonary mycosis [Unknown]
  - Chronic obstructive pulmonary disease [Unknown]
  - Chest pain [Recovered/Resolved]
  - Pneumonia [Recovered/Resolved]

NARRATIVE: CASE EVENT DATE: 2015
